FAERS Safety Report 5871339-8 (Version None)
Quarter: 2008Q3

REPORT INFORMATION
  Report Type: 
  Country: None (occurrence: None)
  Receive Date: 20080904
  Receipt Date: 20080904
  Transmission Date: 20090109
  Serious: Yes (Life-Threatening, Hospitalization)
  Sender: FDA-Public Use
  Company Number: None

PATIENT
  Sex: Female
  Weight: 73.9363 kg

DRUGS (2)
  1. NEXIUM [Suspect]
     Indication: GASTROOESOPHAGEAL REFLUX DISEASE
     Dosage: 40 MG 1 DAILY
  2. NEXIUM [Suspect]
     Indication: OESOPHAGEAL STENOSIS
     Dosage: 40 MG 1 DAILY

REACTIONS (3)
  - COLON CANCER [None]
  - MALAISE [None]
  - SKIN CANCER [None]
